FAERS Safety Report 5056374-4 (Version None)
Quarter: 2006Q3

REPORT INFORMATION
  Report Type: 
  Country: None (occurrence: None)
  Receive Date: 20060717
  Receipt Date: 20060704
  Transmission Date: 20061208
  Serious: Yes (Hospitalization)
  Sender: FDA-Public Use
  Company Number: 2006083573

PATIENT
  Age: 79 Year
  Sex: Female

DRUGS (6)
  1. ZITHROMAX [Suspect]
     Indication: CAT SCRATCH DISEASE
     Dosage: (250 MG), ORAL
     Route: 048
  2. PREVISCAN (FLUINDIONE) [Suspect]
     Indication: ATRIAL FIBRILLATION
     Dosage: 0.5 DF (20 MG, EVERY DAY), ORAL
     Route: 048
     Dates: start: 20060512, end: 20060521
  3. GEMFIBROZIL [Concomitant]
  4. BISOPROLOL FUMARATE [Concomitant]
  5. CORDARONE [Concomitant]
  6. COUMADIN [Concomitant]

REACTIONS (7)
  - BLOOD PRESSURE DECREASED [None]
  - EPISTAXIS [None]
  - HAEMATEMESIS [None]
  - HAEMATOCRIT DECREASED [None]
  - HAEMOGLOBIN DECREASED [None]
  - RED BLOOD CELL COUNT DECREASED [None]
  - VOMITING [None]
